FAERS Safety Report 9531478 (Version 3)
Quarter: 2014Q2

REPORT INFORMATION
  Report Type: Report from Study
  Country: UY (occurrence: UY)
  Receive Date: 20130918
  Receipt Date: 20140404
  Transmission Date: 20141212
  Serious: Yes (Hospitalization)
  Sender: FDA-Public Use
  Company Number: UY-ROCHE-1247943

PATIENT
  Sex: Female

DRUGS (1)
  1. XELODA [Suspect]
     Indication: COLON CANCER METASTATIC
     Route: 048
     Dates: start: 20130315

REACTIONS (6)
  - Dehydration [Recovering/Resolving]
  - Vomiting [Recovering/Resolving]
  - Food intolerance [Recovering/Resolving]
  - Leukopenia [Recovering/Resolving]
  - Palmar-plantar erythrodysaesthesia syndrome [Recovering/Resolving]
  - Bone disorder [Not Recovered/Not Resolved]
